FAERS Safety Report 5241764-7 (Version None)
Quarter: 2007Q1

REPORT INFORMATION
  Report Type: 
  Country: None (occurrence: None)
  Receive Date: 20070220
  Receipt Date: 20070215
  Transmission Date: 20070707
  Serious: Yes (Other)
  Sender: FDA-Public Use
  Company Number: 2007UW03019

PATIENT
  Age: 56 Year
  Sex: Male
  Weight: 90 kg

DRUGS (4)
  1. CRESTOR [Suspect]
     Indication: HYPERCHOLESTEROLAEMIA
     Route: 048
     Dates: start: 20060101, end: 20070211
  2. BENICAR [Concomitant]
     Indication: HYPERTENSION
     Dosage: START DATE=}1 YEAR
     Route: 048
  3. HYDROCHLOROTHIAZIDE [Concomitant]
     Indication: HYPERTENSION
     Dosage: START DATE=}1 YEAR
     Route: 048
  4. HYDROCHLOROTHIAZIDA + OLMESARTANA [Concomitant]
     Indication: HYPERCHOLESTEROLAEMIA
     Dosage: 50/25 MG
     Route: 048

REACTIONS (7)
  - ABDOMINAL PAIN [None]
  - ABDOMINAL PAIN UPPER [None]
  - CHILLS [None]
  - DIZZINESS [None]
  - LABORATORY TEST ABNORMAL [None]
  - MYALGIA [None]
  - NAUSEA [None]
